FAERS Safety Report 20161801 (Version 1)
Quarter: 2021Q4

REPORT INFORMATION
  Report Type: Spontaneous
  Country: US (occurrence: US)
  Receive Date: 20211208
  Receipt Date: 20211208
  Transmission Date: 20220303
  Serious: Yes (Other)
  Sender: FDA-Public Use
  Company Number: US-REGENERON PHARMACEUTICALS, INC.-2021-113296

PATIENT

DRUGS (4)
  1. EYLEA [Suspect]
     Active Substance: AFLIBERCEPT
     Indication: Diabetic retinopathy
     Dosage: EVERY MONTH, IN ONE OF HIS EYES
     Route: 031
  2. EYLEA [Suspect]
     Active Substance: AFLIBERCEPT
     Indication: Vitreous haemorrhage
     Dosage: EVERY 2-3 MONTHS
     Route: 031
  3. EYLEA [Suspect]
     Active Substance: AFLIBERCEPT
     Dosage: ROUGHLY 6 MONTHS
     Route: 031
  4. EYLEA [Suspect]
     Active Substance: AFLIBERCEPT
     Dosage: UNK
     Route: 031

REACTIONS (2)
  - Vitreous haemorrhage [Unknown]
  - Inappropriate schedule of product administration [Unknown]
